FAERS Safety Report 9409545 (Version 1)
Quarter: 2013Q3

REPORT INFORMATION
  Report Type: Spontaneous
  Country: TR (occurrence: TR)
  Receive Date: 20130719
  Receipt Date: 20130719
  Transmission Date: 20140515
  Serious: Yes (Other)
  Sender: FDA-Public Use
  Company Number: TR-ROCHE-1250391

PATIENT
  Sex: 0

DRUGS (1)
  1. RANIBIZUMAB [Suspect]
     Indication: AGE-RELATED MACULAR DEGENERATION
     Route: 065

REACTIONS (4)
  - Choroidal neovascularisation [Unknown]
  - Retinal pigment epithelial tear [Unknown]
  - Detachment of macular retinal pigment epithelium [Unknown]
  - Retinal disorder [Unknown]
